FAERS Safety Report 5506579-0 (Version None)
Quarter: 2007Q4

REPORT INFORMATION
  Report Type: 
  Country: None (occurrence: None)
  Receive Date: 20071101
  Receipt Date: 20071005
  Transmission Date: 20080405
  Serious: Yes (Other)
  Sender: FDA-Public Use
  Company Number: 60706

PATIENT

DRUGS (1)
  1. IBUPROFEN [Suspect]
     Indication: ANALGESIC THERAPY
     Dosage: ORAL
     Route: 048

REACTIONS (2)
  - RENAL PAPILLARY NECROSIS [None]
  - URETERIC OBSTRUCTION [None]
